FAERS Safety Report 18266605 (Version 2)
Quarter: 2020Q4

REPORT INFORMATION
  Report Type: Other
  Country: IT (occurrence: IT)
  Receive Date: 20200915
  Receipt Date: 20201108
  Transmission Date: 20210113
  Serious: Yes (Death)
  Sender: FDA-Public Use
  Company Number: IT-ROCHE-2673906

PATIENT
  Age: 66 Year
  Sex: Male

DRUGS (9)
  1. TOCILIZUMAB. [Suspect]
     Active Substance: TOCILIZUMAB
     Indication: INTERSTITIAL LUNG DISEASE
  2. MORPHINE [Concomitant]
     Active Substance: MORPHINE
  3. ACYCLOVIR. [Concomitant]
     Active Substance: ACYCLOVIR
     Dosage: 10 MG/KG
  4. TOCILIZUMAB. [Suspect]
     Active Substance: TOCILIZUMAB
     Indication: COVID-19
     Dosage: TWO DIFFERENT SITES.
     Route: 058
  5. HYDROXYCHLOROQUINE [Concomitant]
     Active Substance: HYDROXYCHLOROQUINE
  6. HYDROXYCHLOROQUINE [Concomitant]
     Active Substance: HYDROXYCHLOROQUINE
     Dosage: TAPERED TO 200 MG/TWICE A DAY FOR THE FOLLOWING 4 DAYS
  7. AZITHROMYCIN ANHYDROUS. [Concomitant]
     Active Substance: AZITHROMYCIN ANHYDROUS
  8. METHYLPREDNISOLONE. [Suspect]
     Active Substance: METHYLPREDNISOLONE
     Indication: COVID-19
     Dosage: THEN TAPERED TO 40 MG/DAY FOR 3 DAYS AND 20 MG/DAY FOR 1 DAY.
     Route: 065
  9. MIDAZOLAM. [Concomitant]
     Active Substance: MIDAZOLAM

REACTIONS (4)
  - Acute hepatic failure [Fatal]
  - Intentional product use issue [Unknown]
  - Off label use [Unknown]
  - Herpes simplex [Fatal]
